FAERS Safety Report 5123680-4 (Version None)
Quarter: 2006Q4

REPORT INFORMATION
  Report Type: 
  Country: None (occurrence: None)
  Receive Date: 20061010
  Receipt Date: 20060927
  Transmission Date: 20070319
  Serious: Yes (Other)
  Sender: FDA-Public Use
  Company Number: ES-AMGEN-UK195159

PATIENT
  Sex: Male

DRUGS (7)
  1. PALIFERMIN [Suspect]
     Indication: MUCOSAL INFLAMMATION
     Route: 042
     Dates: start: 20060905, end: 20060917
  2. DEXAMETHASONE TAB [Concomitant]
     Route: 065
  3. ACYCLOVIR [Concomitant]
     Route: 065
  4. IMIPENEM [Concomitant]
     Route: 065
  5. ITRACONAZOLE [Concomitant]
     Route: 065
  6. METOCLOPROMIDE [Concomitant]
     Route: 065
  7. ACETAMINOPHEN [Concomitant]
     Route: 065

REACTIONS (3)
  - NAUSEA [None]
  - PULMONARY TOXICITY [None]
  - TACHYCARDIA [None]
